FAERS Safety Report 8187059-3 (Version None)
Quarter: 2012Q1

REPORT INFORMATION
  Report Type: 
  Country: None (occurrence: None)
  Receive Date: 20120302
  Receipt Date: 20110518
  Transmission Date: 20120608
  Serious: Yes (Death)
  Sender: FDA-Public Use
  Company Number: DKLU1077169

PATIENT
  Age: 28 Year
  Sex: Male

DRUGS (5)
  1. ETHANOL (ETHANOL) [Suspect]
     Indication: PRODUCT USED FOR UNKNOWN INDICATION
  2. THC (CANNABIS SATIVA) [Suspect]
     Indication: PRODUCT USED FOR UNKNOWN INDICATION
  3. METHYLENEDIOXYMETHAMPHETAMINE (METHYLENEDIOXYMETHAMPHETAMINE) [Suspect]
     Indication: PRODUCT USED FOR UNKNOWN INDICATION
  4. SERTRALINE HYDROCHLORIDE [Suspect]
     Indication: PRODUCT USED FOR UNKNOWN INDICATION
  5. DESOXYN [Suspect]
     Indication: PRODUCT USED FOR UNKNOWN INDICATION

REACTIONS (5)
  - HEAD INJURY [None]
  - DRUG INTERACTION [None]
  - ROAD TRAFFIC ACCIDENT [None]
  - SPINAL CORD INJURY [None]
  - TOXICITY TO VARIOUS AGENTS [None]
